FAERS Safety Report 17361164 (Version 1)
Quarter: 2020Q1

REPORT INFORMATION
  Report Type: Spontaneous
  Country: US (occurrence: US)
  Receive Date: 20200117
  Receipt Date: 20200117
  Transmission Date: 20200409
  Serious: No
  Sender: FDA-Public Use
  Company Number: None

PATIENT
  Age: 76 Year
  Sex: Female
  Weight: 70.31 kg

DRUGS (2)
  1. ATORVASTATIN [Suspect]
     Active Substance: ATORVASTATIN
     Indication: BLOOD CHOLESTEROL INCREASED
     Route: 048
     Dates: start: 200611, end: 201910
  2. ROSUVASTATIN. [Suspect]
     Active Substance: ROSUVASTATIN

REACTIONS (6)
  - Lactose intolerance [None]
  - Diarrhoea [None]
  - Ageusia [None]
  - Asthenia [None]
  - Amnesia [None]
  - Depression [None]

NARRATIVE: CASE EVENT DATE: 20190404
